FAERS Safety Report 24120646 (Version 1)
Quarter: 2024Q3

REPORT INFORMATION
  Report Type: Spontaneous
  Country: JP (occurrence: JP)
  Receive Date: 20240722
  Receipt Date: 20240722
  Transmission Date: 20241017
  Serious: Yes (Other)
  Sender: BRECKENRIDGE
  Company Number: JP-Breckenridge Pharmaceutical, Inc.-2159320

PATIENT
  Age: 74 Year
  Sex: Male

DRUGS (1)
  1. MONTELUKAST [Suspect]
     Active Substance: MONTELUKAST SODIUM
     Indication: Cough
     Route: 048

REACTIONS (1)
  - Urinary retention [Recovered/Resolved]
